FAERS Safety Report 12939285 (Version 30)
Quarter: 2020Q1

REPORT INFORMATION
  Report Type: Spontaneous
  Country: US (occurrence: US)
  Receive Date: 20161115
  Receipt Date: 20200214
  Transmission Date: 20200409
  Serious: Yes (Other)
  Sender: FDA-Public Use
  Company Number: US-PFIZER INC-2016527148

PATIENT
  Age: 73 Year
  Sex: Female
  Weight: 73 kg

DRUGS (36)
  1. LYRICA [Suspect]
     Active Substance: PREGABALIN
     Indication: TRIGEMINAL NEURALGIA
     Dosage: 75 MG, 3X/DAY (FOR THE FIRST 2 WEEKS)
     Route: 048
     Dates: start: 201607
  2. LYRICA [Suspect]
     Active Substance: PREGABALIN
     Dosage: 75 MG, 1X/DAY
     Route: 048
  3. LYRICA [Suspect]
     Active Substance: PREGABALIN
     Dosage: 150 MG, 2X/DAY (TAKE 1 CAPSULE BY MOUTH 2 TIMES A DAY)
     Route: 048
  4. GABAPENTIN. [Concomitant]
     Active Substance: GABAPENTIN
     Dosage: UNK
  5. LAMICTAL [Concomitant]
     Active Substance: LAMOTRIGINE
     Indication: BIPOLAR DISORDER
     Dosage: 25 MG, 2X/DAY
     Route: 048
     Dates: start: 2002
  6. ROXICODONE [Concomitant]
     Active Substance: OXYCODONE HYDROCHLORIDE
     Indication: PAIN
     Dosage: 5 MG, AS NEEDED, ( EVERY 12 HOURS)  AS NEEDED FOR PAIN MUST LAST 30 DAYS)
     Route: 048
     Dates: start: 2010, end: 201602
  7. XANAX [Concomitant]
     Active Substance: ALPRAZOLAM
     Dosage: 0.5 MG, 2X/DAY
     Route: 048
     Dates: start: 2016
  8. LYRICA [Suspect]
     Active Substance: PREGABALIN
     Indication: NEUROPATHY PERIPHERAL
     Dosage: 75 MG, 2X/DAY
     Route: 048
  9. LYRICA [Suspect]
     Active Substance: PREGABALIN
     Indication: PAIN
     Dosage: 100 MG, 3X/DAY
     Route: 048
  10. LYRICA [Suspect]
     Active Substance: PREGABALIN
     Dosage: 75 MG, 2X/DAY
     Route: 048
  11. LYRICA [Suspect]
     Active Substance: PREGABALIN
     Dosage: 375 MG, DAILY
     Route: 048
  12. LYRICA [Suspect]
     Active Substance: PREGABALIN
     Indication: DISLOCATION OF VERTEBRA
     Dosage: 150 MG, 3X/DAY
     Route: 048
  13. LYRICA [Suspect]
     Active Substance: PREGABALIN
     Dosage: 75 MG, 1X/DAY (TAKE 1 CAPSULE BY MOUTH DAILY IN ADDITION TO LYRICA 150 MG BLD)
     Route: 048
  14. LASIX [Concomitant]
     Active Substance: FUROSEMIDE
     Dosage: UNK
  15. MIRAPEX [Concomitant]
     Active Substance: PRAMIPEXOLE DIHYDROCHLORIDE
     Indication: RESTLESS LEGS SYNDROME
     Dosage: 0.125 MG, 1X/DAY, (ONE AT BEDTIME)
     Route: 048
     Dates: start: 2016
  16. OXYCODONE [Concomitant]
     Active Substance: OXYCODONE
     Indication: ABDOMINAL PAIN
     Dosage: 5 MG, 2X/DAY (EVERY 12 HOURS)
     Route: 048
     Dates: start: 2014
  17. PENLAC [Concomitant]
     Active Substance: CICLOPIROX
     Dosage: UNK
     Route: 061
     Dates: start: 2010
  18. PEPCID [Concomitant]
     Active Substance: FAMOTIDINE
     Dosage: 40 MG, 2X/DAY
     Route: 048
  19. ZOFRAN [Concomitant]
     Active Substance: ONDANSETRON HYDROCHLORIDE
     Indication: ABDOMINAL DISCOMFORT
     Dosage: 1 DF, 1X/DAY
     Route: 048
     Dates: start: 2015
  20. LYRICA [Suspect]
     Active Substance: PREGABALIN
     Indication: PAIN IN EXTREMITY
     Dosage: 100 MG, 2X/DAY
     Route: 048
     Dates: start: 20170829
  21. VOLTAREN [Concomitant]
     Active Substance: DICLOFENAC SODIUM
     Indication: PAIN
     Dosage: 1 G, 2X/DAY
     Route: 061
     Dates: start: 2010
  22. LYRICA [Suspect]
     Active Substance: PREGABALIN
     Indication: ARTHRITIS
     Dosage: 150 MG, 2X/DAY
     Route: 048
     Dates: start: 20161116
  23. LYRICA [Suspect]
     Active Substance: PREGABALIN
     Indication: FIBROMYALGIA
     Dosage: 150 MG, 2X/DAY
     Route: 048
     Dates: start: 20171005
  24. LYRICA [Suspect]
     Active Substance: PREGABALIN
     Dosage: 375 MG, DAILY[75 MG EXTRA ONCE PER DAY IN ADDITIONA TO HER REGULAR 150 MG BID]
     Route: 048
  25. ASPIRIN [ACETYLSALICYLIC ACID] [Concomitant]
     Active Substance: ASPIRIN
     Indication: CARDIAC DISORDER
     Dosage: 1 DF, 1X/DAY
     Route: 048
  26. ASPIRIN [ACETYLSALICYLIC ACID] [Concomitant]
     Active Substance: ASPIRIN
     Dosage: 81 MG, UNK
     Route: 048
  27. VITAMIN D [Concomitant]
     Active Substance: VITAMIN D NOS
     Dosage: 50000 IU, WEEKLY, (TAKE 1 CAPSULE BY MOUTH ONCE A WEEK)
     Route: 048
  28. VITAMIN D3 [Concomitant]
     Active Substance: CHOLECALCIFEROL
     Dosage: 1000 IU, 2X/DAY
     Route: 048
     Dates: start: 2010
  29. ASPIRIN (E.C.) [Concomitant]
     Active Substance: ASPIRIN
     Dosage: 81 MG, DAILY
     Route: 048
     Dates: start: 2010
  30. LAMICTAL [Concomitant]
     Active Substance: LAMOTRIGINE
     Dosage: 100 MG, 2X/DAY
     Route: 048
  31. LIORESAL [Concomitant]
     Active Substance: BACLOFEN
     Indication: MUSCLE SPASMS
     Dosage: 20 MG, 2X/DAY
     Route: 048
  32. XANAX [Concomitant]
     Active Substance: ALPRAZOLAM
     Indication: ANXIETY
     Dosage: UNK
     Route: 048
     Dates: start: 2004
  33. ZOFRAN [Concomitant]
     Active Substance: ONDANSETRON HYDROCHLORIDE
     Indication: NAUSEA
     Dosage: UNK
     Route: 048
     Dates: start: 2013
  34. CYMBALTA [Concomitant]
     Active Substance: DULOXETINE HYDROCHLORIDE
     Dosage: UNK
  35. LYRICA [Suspect]
     Active Substance: PREGABALIN
     Indication: ARTHRALGIA
     Dosage: 100 MG, 2X/DAY
     Route: 048
     Dates: start: 20170216
  36. OXYCODONE [Concomitant]
     Active Substance: OXYCODONE
     Indication: TRIGEMINAL NEURALGIA

REACTIONS (25)
  - Therapeutic product effect delayed [Unknown]
  - Pain in extremity [Not Recovered/Not Resolved]
  - Eye pain [Unknown]
  - Drug dependence [Unknown]
  - Hypoaesthesia [Unknown]
  - Confusional state [Unknown]
  - Neuropathy peripheral [Recovering/Resolving]
  - Nervousness [Unknown]
  - Feeling abnormal [Unknown]
  - Fall [Recovered/Resolved with Sequelae]
  - Blindness [Unknown]
  - Intentional product misuse [Unknown]
  - Product prescribing error [Unknown]
  - Peripheral swelling [Recovering/Resolving]
  - Product dose omission [Unknown]
  - Musculoskeletal pain [Unknown]
  - Pain [Unknown]
  - Tremor [Recovering/Resolving]
  - Gait disturbance [Unknown]
  - Upper limb fracture [Recovered/Resolved with Sequelae]
  - Arthralgia [Unknown]
  - Drug ineffective [Unknown]
  - Vertigo [Unknown]
  - Musculoskeletal discomfort [Unknown]
  - Head injury [Unknown]

NARRATIVE: CASE EVENT DATE: 20170922
